FAERS Safety Report 4805720-2 (Version None)
Quarter: 2005Q4

REPORT INFORMATION
  Report Type: 
  Country: None (occurrence: None)
  Receive Date: 20051021
  Receipt Date: 20051010
  Transmission Date: 20060501
  Serious: Yes (Other)
  Sender: FDA-Public Use
  Company Number: ES-JNJFOC-20041106393

PATIENT
  Age: 29 Year
  Sex: Female

DRUGS (5)
  1. INFLIXIMAB [Suspect]
     Route: 042
  2. INFLIXIMAB [Suspect]
     Indication: CROHN'S DISEASE
     Dosage: NINE DOSES SINCE JAN-02.
     Route: 042
  3. METHOTREXATE [Concomitant]
  4. CELECOXIB [Concomitant]
  5. AZATHIOPRINE [Concomitant]

REACTIONS (1)
  - PSORIASIS [None]
